FAERS Safety Report 5081818-1 (Version None)
Quarter: 2006Q3

REPORT INFORMATION
  Report Type: 
  Country: None (occurrence: None)
  Receive Date: 20060816
  Receipt Date: 20060811
  Transmission Date: 20061208
  Serious: Yes (Hospitalization)
  Sender: FDA-Public Use
  Company Number: GB-GLAXOSMITHKLINE-B0434182A

PATIENT
  Age: 60 Year
  Sex: Female

DRUGS (3)
  1. AUGMENTIN [Suspect]
     Indication: PHARYNGOLARYNGEAL PAIN
     Dosage: 375MG UNKNOWN
     Route: 048
     Dates: start: 20060506, end: 20060513
  2. BENDROFLUAZIDE [Concomitant]
     Route: 048
  3. LOSARTAN POSTASSIUM [Concomitant]
     Route: 048

REACTIONS (1)
  - JAUNDICE [None]
